FAERS Safety Report 4392959-6 (Version None)
Quarter: 2004Q3

REPORT INFORMATION
  Report Type: 
  Country: None (occurrence: None)
  Receive Date: 20040702
  Receipt Date: 20040621
  Transmission Date: 20050211
  Serious: Yes (Other)
  Sender: FDA-Public Use
  Company Number: 2004040549

PATIENT
  Age: 59 Year
  Sex: Male

DRUGS (4)
  1. SORTIS (ATORVASTATIN) [Suspect]
     Indication: CORONARY ARTERY DISEASE
     Dosage: 10 MG (10 MG, 1 IN 1 D) ORAL
     Route: 048
  2. SORTIS (ATORVASTATIN) [Suspect]
     Indication: DIABETES MELLITUS
     Dosage: 10 MG (10 MG, 1 IN 1 D) ORAL
     Route: 048
  3. SORTIS (ATORVASTATIN) [Suspect]
     Indication: HYPERLIPIDAEMIA
     Dosage: 10 MG (10 MG, 1 IN 1 D) ORAL
     Route: 048
  4. INSULIN [Concomitant]

REACTIONS (2)
  - MYALGIA [None]
  - MYOGLOBIN BLOOD INCREASED [None]
